FAERS Safety Report 7614355-8 (Version None)
Quarter: 2011Q3

REPORT INFORMATION
  Report Type: 
  Country: None (occurrence: None)
  Receive Date: 20110708
  Receipt Date: 20110624
  Transmission Date: 20111222
  Serious: Yes (Other)
  Sender: FDA-Public Use
  Company Number: AUR-APL-2011-03709

PATIENT
  Age: 47 Year
  Sex: Male
  Weight: 113 kg

DRUGS (16)
  1. ERLOTINIB HYDROCHLORIDE [Suspect]
     Indication: LUNG NEOPLASM MALIGNANT
     Dosage: 150 MG, 1 D, ORAL
     Route: 048
  2. OXYCODONE HCL [Suspect]
     Indication: PAIN
     Dosage: 5 MG, AS REQUIRED;
  3. RADIATION [Suspect]
     Indication: PRODUCT USED FOR UNKNOWN INDICATION
  4. VITAMIN K TAB [Suspect]
     Indication: PRODUCT USED FOR UNKNOWN INDICATION
  5. DEXAMETHASONE [Suspect]
     Indication: PRODUCT USED FOR UNKNOWN INDICATION
     Dosage: 20 MG,
  6. WARFARIN SODIUM [Suspect]
     Indication: EMBOLISM VENOUS
     Dosage: 2.5 MG, 1 D;
  7. PACLITAXEL [Suspect]
     Indication: PRODUCT USED FOR UNKNOWN INDICATION
     Dosage: 130 MG, INTRAVENOUS
     Route: 042
  8. CITALOPRAM HYDROBROMIDE [Suspect]
     Indication: PRODUCT USED FOR UNKNOWN INDICATION
     Dosage: 10 MG, 1 D
  9. CARBOPLATIN [Suspect]
     Indication: PRODUCT USED FOR UNKNOWN INDICATION
     Dosage: 285 MG, INTRAVENOUS
     Route: 042
  10. ALPRAZOLAM [Suspect]
     Indication: PRODUCT USED FOR UNKNOWN INDICATION
     Dosage: 1 MG (0.5 MG, 2 IN 1 D);
  11. CIMETIDINE [Suspect]
     Indication: PRODUCT USED FOR UNKNOWN INDICATION
     Dosage: 300 MG, INTRAVENOUS
     Route: 042
  12. DARBEPOETIN ALFA (DARBEPOETIN ALFA) [Suspect]
     Indication: PRODUCT USED FOR UNKNOWN INDICATION
  13. DIPHENHYDRAMINE HCL [Suspect]
     Indication: PRODUCT USED FOR UNKNOWN INDICATION
  14. BEVACIZUMAB (BEVACIZUMAB) [Suspect]
     Indication: PRODUCT USED FOR UNKNOWN INDICATION
     Dosage: 1497 MG, 1 WK,
  15. GRANISETRON [Suspect]
     Indication: PRODUCT USED FOR UNKNOWN INDICATION
     Dosage: 1 MG, INTRAVENOUS
     Route: 042
  16. LOPERAMIDE [Suspect]
     Indication: DIARRHOEA
     Dosage: AS REQUIRED;

REACTIONS (8)
  - INTERNATIONAL NORMALISED RATIO INCREASED [None]
  - CONTUSION [None]
  - DRUG INTERACTION [None]
  - RASH [None]
  - DIARRHOEA [None]
  - WEIGHT DECREASED [None]
  - JOINT SWELLING [None]
  - HAEMATOMA [None]
